FAERS Safety Report 4860747-X (Version None)
Quarter: 2005Q4

REPORT INFORMATION
  Report Type: 
  Country: None (occurrence: None)
  Receive Date: 20051216
  Receipt Date: 20051209
  Transmission Date: 20060501
  Serious: Yes (Hospitalization, Other)
  Sender: FDA-Public Use
  Company Number: 2005141170

PATIENT
  Age: 61 Year
  Sex: Male
  Weight: 78 kg

DRUGS (3)
  1. TAHOR (ATORVASTATIN) [Suspect]
     Indication: HYPERCHOLESTEROLAEMIA
     Dosage: 80 MG (80 MG, 1 IN 1 D), ORAL
     Route: 048
     Dates: end: 20050101
  2. ZESTRIL [Concomitant]
  3. TOCOPHEROX [Concomitant]

REACTIONS (2)
  - SURGERY [None]
  - TENDON RUPTURE [None]
